FAERS Safety Report 20537115 (Version 1)
Quarter: 2022Q1

REPORT INFORMATION
  Report Type: Spontaneous
  Country: US (occurrence: None)
  Receive Date: 20220302
  Receipt Date: 20220302
  Transmission Date: 20220423
  Serious: No
  Sender: FDA-Public Use
  Company Number: US-ROCHE-2962912

PATIENT
  Sex: Male

DRUGS (2)
  1. NUTROPIN [Suspect]
     Active Substance: SOMATROPIN
     Indication: Ill-defined disorder
     Dosage: 0.6 MG THEN 1 MG, ONGOING-YES, NUTROPIN AQ NUSPIN 10 PEN- 10 MG/2 ML
     Route: 058
  2. NUTROPIN [Suspect]
     Active Substance: SOMATROPIN

REACTIONS (2)
  - Burning sensation [Unknown]
  - Off label use [Unknown]
